FAERS Safety Report 10258224 (Version 3)
Quarter: 2014Q3

REPORT INFORMATION
  Report Type: Report from Study
  Country: US (occurrence: US)
  Receive Date: 20140625
  Receipt Date: 20140806
  Transmission Date: 20150326
  Serious: No
  Sender: FDA-Public Use
  Company Number: US-SA-2014SA079554

PATIENT
  Age: 77 Year
  Sex: Male
  Weight: 77.1 kg

DRUGS (1)
  1. LANTUS [Suspect]
     Active Substance: INSULIN GLARGINE
     Indication: TYPE 2 DIABETES MELLITUS
     Dosage: 13-15 UNITS AT BEDTIME DOSE:14 UNIT(S)
     Route: 058
     Dates: start: 2004, end: 201406

REACTIONS (1)
  - Blood glucose increased [Unknown]
